FAERS Safety Report 7860724-0 (Version None)
Quarter: 2011Q4

REPORT INFORMATION
  Report Type: 
  Country: None (occurrence: None)
  Receive Date: 20111027
  Receipt Date: 20111012
  Transmission Date: 20120403
  Serious: Yes (Hospitalization)
  Sender: FDA-Public Use
  Company Number: US-BAYER-2011-055300

PATIENT
  Age: 31 Year
  Sex: Female
  Weight: 83.9 kg

DRUGS (14)
  1. HALDOL [Concomitant]
     Dosage: UNK UNK, PRN
  2. PROPRANOLOL [Concomitant]
     Dosage: 20 MG, BID
     Route: 048
  3. ZYPREXA [Concomitant]
     Dosage: 30 MG, HS
     Route: 048
  4. YAZ [Suspect]
     Indication: ACNE
     Dosage: UNK
     Dates: start: 20080101, end: 20090101
  5. MILK OF MAGNESIA TAB [Concomitant]
     Dosage: UNK UNK, PRN
     Route: 048
  6. TYLENOL-500 [Concomitant]
     Dosage: UNK UNK, PRN
     Route: 048
  7. IBUPROFEN [Concomitant]
  8. NAPROSYN [Concomitant]
     Dosage: 500 MG, BID
     Route: 048
  9. EFFEXOR [Concomitant]
     Dosage: 30 MG, HS
     Route: 048
  10. TRAMADOL HCL [Concomitant]
     Dosage: 50 MG, UNK
  11. ALBUTEROL SULFATE [Concomitant]
     Dosage: UNK
  12. ATIVAN [Concomitant]
     Dosage: 0.5 MG, BID
     Route: 048
  13. ANTACIDS [Concomitant]
     Dosage: UNK UNK, PRN
  14. BENADRYL [Concomitant]
     Dosage: 50 MG, BID
     Route: 048

REACTIONS (2)
  - PULMONARY EMBOLISM [None]
  - PAIN [None]
